FAERS Safety Report 18777503 (Version 1)
Quarter: 2021Q1

REPORT INFORMATION
  Report Type: Spontaneous
  Country: PT (occurrence: PT)
  Receive Date: 20210122
  Receipt Date: 20210122
  Transmission Date: 20210419
  Serious: Yes (Other)
  Sender: FDA-Public Use
  Company Number: PT-ASTRAZENECA-2021A009338

PATIENT
  Age: 37 Year
  Sex: Female

DRUGS (6)
  1. BIRESP SPIROMAX [Suspect]
     Active Substance: BUDESONIDE\FORMOTEROL FUMARATE
     Indication: ASTHMA
     Dosage: 1 DOSAGE FORM IS COMPOSED BY 160 MICROG/DOSE + 4,5 MICROG/DOSE
     Route: 055
     Dates: end: 202002
  2. LORATADINE. [Concomitant]
     Active Substance: LORATADINE
     Dosage: USE ONLY WHEN WITH ALLERGIC RHINITIS
  3. AVAMYS [Concomitant]
     Active Substance: FLUTICASONE FUROATE
     Dosage: USE ONLY WHEN WITH ALLERGIC RHINITIS
     Route: 055
  4. GIBITAIR EASYHALER [BUDESONIDE\FORMOTEROL FUMARATE] [Suspect]
     Active Substance: BUDESONIDE\FORMOTEROL FUMARATE
     Route: 065
     Dates: start: 2020, end: 2020
  5. SALBUTAMOL [Concomitant]
     Active Substance: ALBUTEROL
     Indication: ASTHMA
     Dosage: 100 ??G/DOSE, IN ASTHMA CRISIS, SOS
     Dates: end: 202002
  6. BIRESP SPIROMAX [Suspect]
     Active Substance: BUDESONIDE\FORMOTEROL FUMARATE
     Indication: ASTHMA
     Dosage: 1 DOSAGE FORMS DAILY; 1 DOSAGE FORM IS COMPOSED BY 160 MICROG/DOSE + 4,5 MICROG/DOSE
     Route: 055
     Dates: end: 20201119

REACTIONS (8)
  - Normal newborn [Unknown]
  - Gestational diabetes [Unknown]
  - Fatigue [Unknown]
  - Maternal exposure during breast feeding [Unknown]
  - Maternal exposure during pregnancy [Unknown]
  - Product expiration date issue [Unknown]
  - Induced labour [Unknown]
  - Dyspnoea [Unknown]

NARRATIVE: CASE EVENT DATE: 2020
